FAERS Safety Report 9769191 (Version 3)
Quarter: 2014Q1

REPORT INFORMATION
  Report Type: Report from Study
  Country: ES (occurrence: ES)
  Receive Date: 20131218
  Receipt Date: 20140303
  Transmission Date: 20141002
  Serious: Yes (Hospitalization)
  Sender: FDA-Public Use
  Company Number: ES-SA-2013SA129176

PATIENT
  Age: 65 Year
  Sex: Male
  Weight: 86 kg

DRUGS (5)
  1. CABAZITAXEL [Suspect]
     Indication: PROSTATE CANCER METASTATIC
     Route: 042
     Dates: start: 20131121, end: 20131121
  2. PREDNISONE [Suspect]
     Indication: PROSTATE CANCER METASTATIC
  3. OMEPRAZOLE [Concomitant]
  4. MORPHINE [Concomitant]
  5. ATORVASTATIN [Concomitant]

REACTIONS (1)
  - Gastrointestinal toxicity [Recovered/Resolved]
